FAERS Safety Report 10355246 (Version 1)
Quarter: 2014Q3

REPORT INFORMATION
  Report Type: Spontaneous
  Country: FR (occurrence: FR)
  Receive Date: 20140731
  Receipt Date: 20140731
  Transmission Date: 20150326
  Serious: Yes (Hospitalization)
  Sender: FDA-Public Use
  Company Number: FR-ELI_LILLY_AND_COMPANY-FR201407007689

PATIENT
  Age: 59 Year
  Sex: Male

DRUGS (14)
  1. CYMBALTA [Suspect]
     Active Substance: DULOXETINE HYDROCHLORIDE
     Indication: NEURALGIA
     Dosage: 1 DF, UNKNOWN
     Route: 048
     Dates: start: 2012, end: 20131119
  2. LANTUS [Concomitant]
     Active Substance: INSULIN GLARGINE
     Dosage: 40 IU, EACH EVENING
     Route: 065
  3. PREVISCAN [Concomitant]
     Active Substance: FLUINDIONE
     Dosage: 2 DF, QD
     Route: 065
     Dates: start: 200911
  4. CRESTOR [Concomitant]
     Active Substance: ROSUVASTATIN CALCIUM
     Dosage: 10 MG, QD
     Route: 065
  5. RIVOTRIL                                /NOR/ [Concomitant]
     Dosage: 16 GTT, QD: 3 DROPS ON MORNING, AT NOON, 10 DROPS ON EVENING
     Route: 065
     Dates: start: 20131205
  6. FEXOFENADINE [Suspect]
     Active Substance: FEXOFENADINE\FEXOFENADINE HYDROCHLORIDE
     Indication: HYPERSENSITIVITY
     Dosage: 180 MG, QD
     Route: 048
     Dates: start: 1994, end: 20140410
  7. LERCAN [Concomitant]
     Active Substance: LERCANIDIPINE
     Dosage: 10 MG, QD
     Route: 065
     Dates: start: 201301
  8. NEURONTIN [Suspect]
     Active Substance: GABAPENTIN
     Indication: NEURALGIA
     Dosage: 1 DF, UNKNOWN
     Route: 048
     Dates: start: 200709, end: 20131205
  9. KARDEGIC [Concomitant]
     Active Substance: ASPIRIN LYSINE
     Dosage: 1 DF, QD
     Route: 065
     Dates: start: 200601
  10. METFORMINE [Concomitant]
     Active Substance: METFORMIN HYDROCHLORIDE
     Dosage: 1 G, TID
     Route: 065
     Dates: start: 200407
  11. NOVORAPID [Concomitant]
     Active Substance: INSULIN ASPART
     Dosage: 1 DF, OTHER: PUNCTUALLY
     Route: 065
  12. APROVEL [Concomitant]
     Active Substance: IRBESARTAN
     Dosage: UNK UNK, QD (300, NO UNITS)
     Route: 065
     Dates: start: 201206
  13. SOTALOL. [Concomitant]
     Active Substance: SOTALOL
     Dosage: 1.5 DF, QD
     Route: 065
     Dates: start: 200911
  14. KEPPRA [Concomitant]
     Active Substance: LEVETIRACETAM
     Dosage: 0.5 DF, EACH EVENING
     Route: 065
     Dates: start: 201406

REACTIONS (4)
  - Muscle spasms [Unknown]
  - Axonal neuropathy [Unknown]
  - Abdominal pain [Unknown]
  - Oromandibular dystonia [Not Recovered/Not Resolved]

NARRATIVE: CASE EVENT DATE: 201307
